FAERS Safety Report 17410921 (Version 2)
Quarter: 2023Q1

REPORT INFORMATION
  Report Type: Spontaneous
  Country: US (occurrence: US)
  Receive Date: 20200212
  Receipt Date: 20230215
  Transmission Date: 20230418
  Serious: No
  Sender: FDA-Public Use
  Company Number: US-009507513-2002USA001698

PATIENT
  Sex: Male

DRUGS (3)
  1. KEYTRUDA [Suspect]
     Active Substance: PEMBROLIZUMAB
     Indication: Neuroendocrine carcinoma of the skin
     Dosage: UNKNOWN DOSE EVERY 6 WEEKS
     Route: 042
     Dates: start: 201905
  2. ALLOPURINOL [Concomitant]
     Active Substance: ALLOPURINOL
  3. SILDENAFIL CITRATE [Concomitant]
     Active Substance: SILDENAFIL CITRATE

REACTIONS (6)
  - Blister [Not Recovered/Not Resolved]
  - Blister rupture [Not Recovered/Not Resolved]
  - Blood blister [Not Recovered/Not Resolved]
  - Skin discolouration [Not Recovered/Not Resolved]
  - Skin exfoliation [Not Recovered/Not Resolved]
  - Therapeutic response unexpected [Recovering/Resolving]
